FAERS Safety Report 4501586-9 (Version None)
Quarter: 2004Q3

REPORT INFORMATION
  Report Type: 
  Country: None (occurrence: None)
  Receive Date: 20040928
  Receipt Date: 20040824
  Transmission Date: 20050211
  Serious: No
  Sender: FDA-Public Use
  Company Number: 04P-163-0271304-00

PATIENT
  Age: 48 Year
  Sex: Female
  Weight: 103.4201 kg

DRUGS (5)
  1. HUMIRA [Suspect]
     Indication: RHEUMATOID ARTHRITIS
     Dosage: 40 MG, 1 IN 2 WK, SUBCUTANEOUS
     Route: 058
     Dates: start: 20040601
  2. TRAZODONE HCL [Concomitant]
  3. BUPROPION HYDROCHLORIDE [Concomitant]
  4. LAMOTRIGINE [Concomitant]
  5. METHOTREXATE SODIUM [Concomitant]

REACTIONS (1)
  - ACCIDENTAL NEEDLE STICK [None]
